FAERS Safety Report 24118906 (Version 2)
Quarter: 2024Q3

REPORT INFORMATION
  Report Type: Spontaneous
  Country: IN (occurrence: IN)
  Receive Date: 20240722
  Receipt Date: 20240729
  Transmission Date: 20241016
  Serious: Yes (Hospitalization, Other)
  Sender: ASTELLAS
  Company Number: IN-ASTELLAS-2024EU007073

PATIENT
  Age: 67 Year
  Sex: Male

DRUGS (5)
  1. ISAVUCONAZOLE [Suspect]
     Active Substance: ISAVUCONAZOLE
     Indication: Mucormycosis
     Dosage: 200 MG, EVERY 8 HOURS (FOR 6 DOSES)
     Route: 042
  2. ISAVUCONAZOLE [Suspect]
     Active Substance: ISAVUCONAZOLE
     Dosage: 200 MG, ONCE DAILY (AFTER AT LEAST 10 DAYS)
     Route: 042
  3. AMPHOTERICIN B [Concomitant]
     Active Substance: AMPHOTERICIN B
     Indication: Mucormycosis
     Dosage: 70 MG, UNKNOWN FREQ. (IN 250 ML 5% DEXTROSE OVER 6 HOURS) FOR 7 DAYS
     Route: 042
  4. AMPHOTERICIN B [Concomitant]
     Active Substance: AMPHOTERICIN B
     Route: 042
  5. MAGNESIUM SULFATE [Concomitant]
     Active Substance: MAGNESIUM SULFATE\MAGNESIUM SULFATE HEPTAHYDRATE
     Indication: Product used for unknown indication
     Dosage: 2 MG, UNKNOWN FREQ. (100 ML NORMAL SALINE AT A RATE OF 25 ML/HR))
     Route: 065

REACTIONS (1)
  - Cholestasis [Unknown]
